FAERS Safety Report 8536786 (Version 4)
Quarter: 2013Q2

REPORT INFORMATION
  Report Type: Spontaneous
  Country: US (occurrence: US)
  Receive Date: 20120430
  Receipt Date: 20130614
  Transmission Date: 20140414
  Serious: Yes (Hospitalization)
  Sender: FDA-Public Use
  Company Number: US-BAYER-2012-041611

PATIENT
  Age: 39 Year
  Sex: Female
  Weight: 61 kg

DRUGS (6)
  1. YAZ [Suspect]
     Indication: DYSMENORRHOEA
     Dosage: UNK
     Dates: start: 200807, end: 200909
  2. YAZ [Suspect]
     Indication: PREMENSTRUAL SYNDROME
  3. OCELLA [Suspect]
     Indication: PREMENSTRUAL SYNDROME
  4. YASMIN [Suspect]
     Indication: PREMENSTRUAL SYNDROME
  5. MULTIVITAMIN [Concomitant]
  6. B-COMPLEX [Concomitant]

REACTIONS (8)
  - Cholelithiasis [None]
  - Injury [None]
  - Pain [None]
  - General physical health deterioration [None]
  - Emotional distress [None]
  - Anxiety [None]
  - Cholecystitis chronic [None]
  - Off label use [None]
